FAERS Safety Report 7320986-5 (Version None)
Quarter: 2011Q1

REPORT INFORMATION
  Report Type: 
  Country: None (occurrence: None)
  Receive Date: 20110228
  Receipt Date: 20110224
  Transmission Date: 20110831
  Serious: Yes (Other)
  Sender: FDA-Public Use
  Company Number: BR-ROCHE-761764

PATIENT
  Age: 42 Year
  Sex: Female

DRUGS (2)
  1. AVASTIN [Suspect]
     Indication: BREAST CANCER METASTATIC
     Route: 042
     Dates: start: 20100201
  2. XELODA [Concomitant]
     Indication: BREAST CANCER METASTATIC
     Dates: start: 20100701

REACTIONS (1)
  - HEMIANOPIA [None]
